FAERS Safety Report 4817579-8 (Version None)
Quarter: 2005Q4

REPORT INFORMATION
  Report Type: 
  Country: None (occurrence: None)
  Receive Date: 20051031
  Receipt Date: 20051020
  Transmission Date: 20060501
  Serious: Yes (Hospitalization, Other)
  Sender: FDA-Public Use
  Company Number: 2005-09-1207

PATIENT
  Age: 34 Year
  Sex: Female

DRUGS (2)
  1. CLARITIN ALLERGY + SINUS EXTRA STRENGTH [Suspect]
     Indication: RHINITIS SEASONAL
     Dosage: 1 TAB QD ORAL
     Route: 048
     Dates: start: 20050903, end: 20050913
  2. ......................... [Concomitant]

REACTIONS (5)
  - ABASIA [None]
  - AMNESIA [None]
  - ASTHENIA [None]
  - DIZZINESS [None]
  - LOSS OF CONSCIOUSNESS [None]
